FAERS Safety Report 10386969 (Version 1)
Quarter: 2014Q1

REPORT INFORMATION
  Report Type: Spontaneous
  Country: US (occurrence: None)
  Receive Date: 20140306
  Receipt Date: 20140306
  Transmission Date: 20141002
  Serious: Yes (Hospitalization)
  Sender: FDA-Public Use
  Company Number: 163-21880-13042984

PATIENT
  Age: 77 Year
  Sex: Female
  Weight: 73.03 kg

DRUGS (9)
  1. REVLIMID (LENALIDOMIDE) (5 MILLIGRAM, CAPSULES) [Suspect]
     Indication: MYELODYSPLASTIC SYNDROME
     Route: 048
     Dates: start: 20111111
  2. WARFARIN [Concomitant]
  3. ASPIRIN (ACETYLSALICYLIC ACID) [Concomitant]
  4. DIGOXIN [Concomitant]
  5. LEVOTHYROXINE [Concomitant]
  6. FOLBIC (HEPAGRISEVIT FORTE-N TABLET) [Concomitant]
  7. TORSEMIDE [Concomitant]
  8. METOPROLOL [Concomitant]
  9. FENOFIBRATE [Suspect]

REACTIONS (2)
  - Oedema peripheral [None]
  - Fungal infection [None]
